FAERS Safety Report 8124528-6 (Version None)
Quarter: 2012Q1

REPORT INFORMATION
  Report Type: 
  Country: None (occurrence: None)
  Receive Date: 20120209
  Receipt Date: 20120130
  Transmission Date: 20120608
  Serious: Yes (Other)
  Sender: FDA-Public Use
  Company Number: JP-EISAI INC-E7389-02018-SPO-JP

PATIENT
  Age: 46 Year
  Sex: Female
  Weight: 96 kg

DRUGS (3)
  1. HALAVEN [Suspect]
     Indication: BREAST CANCER RECURRENT
     Route: 041
     Dates: start: 20120105
  2. NAVELBINE [Concomitant]
     Dates: start: 20111001
  3. LIPITOR [Concomitant]
     Dates: start: 20090101

REACTIONS (1)
  - RHABDOMYOLYSIS [None]
